FAERS Safety Report 13771173 (Version 1)
Quarter: 2017Q3

REPORT INFORMATION
  Report Type: Spontaneous
  Country: US (occurrence: US)
  Receive Date: 20170720
  Receipt Date: 20170720
  Transmission Date: 20171127
  Serious: Yes (Other)
  Sender: FDA-Public Use
  Company Number: None

PATIENT
  Age: 59 Year
  Sex: Female
  Weight: 59 kg

DRUGS (7)
  1. MARIJUANA [Concomitant]
     Active Substance: CANNABIS SATIVA SUBSP. INDICA TOP
  2. FASLODEX [Concomitant]
     Active Substance: FULVESTRANT
  3. FENTANYL. [Concomitant]
     Active Substance: FENTANYL
  4. IRON [Concomitant]
     Active Substance: IRON
  5. IBRANCE [Suspect]
     Active Substance: PALBOCICLIB
     Indication: BREAST CANCER
     Dosage: ?          OTHER DOSE:MG;?
     Route: 048
     Dates: start: 20170608
  6. XGEVA [Concomitant]
     Active Substance: DENOSUMAB
  7. VITAMIN D [Concomitant]
     Active Substance: CHOLECALCIFEROL

REACTIONS (3)
  - Pruritus [None]
  - Rash [None]
  - Erythema [None]

NARRATIVE: CASE EVENT DATE: 20170719
